FAERS Safety Report 8907960 (Version 1)
Quarter: 2012Q4

REPORT INFORMATION
  Report Type: 
  Country: JP (occurrence: JP)
  Receive Date: 20121114
  Receipt Date: 20121114
  Transmission Date: 20130627
  Serious: Yes (Other)
  Sender: FDA-Public Use
  Company Number: JP-BAYER-2012-116738

PATIENT
  Age: 28 Year
  Sex: Female

DRUGS (2)
  1. YAZ [Suspect]
     Indication: DYSMENORRHOEA
     Dosage: 1 DF, QD
     Route: 048
     Dates: start: 20121005, end: 20121016
  2. YAZ [Suspect]
     Indication: OVARIAN CHOCOLATE CYST

REACTIONS (3)
  - Retinal ischaemia [Recovered/Resolved]
  - Blindness transient [Recovered/Resolved]
  - Headache [Recovered/Resolved]
